FAERS Safety Report 7510215-1 (Version None)
Quarter: 2011Q2

REPORT INFORMATION
  Report Type: 
  Country: None (occurrence: None)
  Receive Date: 20110527
  Receipt Date: 20101109
  Transmission Date: 20111010
  Serious: No
  Sender: FDA-Public Use
  Company Number: US-BAYER-201040999NA

PATIENT
  Sex: Female

DRUGS (1)
  1. AVELOX [Suspect]
     Indication: RESPIRATORY TRACT INFECTION
     Dosage: 400 MG, QD
     Route: 048
     Dates: start: 20101103, end: 20101103

REACTIONS (1)
  - TACHYCARDIA [None]
